FAERS Safety Report 6581277-3 (Version None)
Quarter: 2010Q1

REPORT INFORMATION
  Report Type: 
  Country: None (occurrence: None)
  Receive Date: 20100215
  Receipt Date: 20100205
  Transmission Date: 20100710
  Serious: Yes (Hospitalization, Other)
  Sender: FDA-Public Use
  Company Number: GB-ABBOTT-05P-167-0316731-00

PATIENT
  Age: 56 Year
  Sex: Male

DRUGS (19)
  1. CLARITHROMYCIN [Interacting]
     Indication: LOWER RESPIRATORY TRACT INFECTION
     Route: 048
  2. CLARITHROMYCIN [Interacting]
     Indication: PNEUMONIA
  3. SIMVASTATIN [Interacting]
     Indication: MYOCARDIAL ISCHAEMIA
     Route: 048
  4. SIMVASTATIN [Interacting]
     Route: 048
  5. SIMVASTATIN [Interacting]
  6. AMIODARONE [Interacting]
     Indication: SUPRAVENTRICULAR TACHYCARDIA
     Route: 042
  7. AMIODARONE [Interacting]
     Route: 048
  8. AMIODARONE [Interacting]
     Route: 048
  9. AMIODARONE [Interacting]
     Route: 048
  10. ADENOSINE [Suspect]
     Indication: SINUS ARRHYTHMIA
     Route: 042
  11. ADENOSINE [Suspect]
     Indication: SUPRAVENTRICULAR TACHYCARDIA
  12. ACETYLSALICYLIC ACID [Concomitant]
     Indication: MYOCARDIAL ISCHAEMIA
  13. AMLODIPINE [Concomitant]
     Indication: MYOCARDIAL ISCHAEMIA
  14. FERROUS SULFATE TAB [Concomitant]
     Indication: DRUG USE FOR UNKNOWN INDICATION
  15. LANSOPRAZOLE [Concomitant]
     Indication: DRUG USE FOR UNKNOWN INDICATION
  16. CEFTRIAXONE [Concomitant]
     Indication: PNEUMONIA
     Route: 042
  17. CEFTRIAXONE [Concomitant]
  18. ADENOSINE [Concomitant]
     Indication: ARRHYTHMIA
     Route: 042
  19. ASPIRIN [Concomitant]
     Indication: MYOCARDIAL ISCHAEMIA

REACTIONS (17)
  - ALANINE AMINOTRANSFERASE INCREASED [None]
  - ASPARTATE AMINOTRANSFERASE INCREASED [None]
  - ASTHENIA [None]
  - BLOOD CREATINE PHOSPHOKINASE INCREASED [None]
  - DRUG INTERACTION [None]
  - HYPOKALAEMIA [None]
  - HYPOKINESIA [None]
  - INFECTION [None]
  - LIVER FUNCTION TEST ABNORMAL [None]
  - MYALGIA [None]
  - MYOPATHY [None]
  - MYOSITIS [None]
  - PERICARDIAL EFFUSION [None]
  - PLEURAL EFFUSION [None]
  - PNEUMONIA [None]
  - PULMONARY EMBOLISM [None]
  - SUPRAVENTRICULAR TACHYCARDIA [None]
